FAERS Safety Report 13512592 (Version 1)
Quarter: 2017Q2

REPORT INFORMATION
  Report Type: Spontaneous
  Country: CA (occurrence: CA)
  Receive Date: 20170504
  Receipt Date: 20170504
  Transmission Date: 20170830
  Serious: Yes (Death, Life-Threatening, Hospitalization)
  Sender: FDA-Public Use
  Company Number: CA-ASTRAZENECA-2017SE45129

PATIENT
  Age: 71 Year
  Sex: Female

DRUGS (10)
  1. CITALOPRAM [Suspect]
     Active Substance: CITALOPRAM HYDROBROMIDE
     Route: 048
  2. LEVOTHYROXINE. [Suspect]
     Active Substance: LEVOTHYROXINE
     Route: 048
  3. ROSUVASTATIN. [Suspect]
     Active Substance: ROSUVASTATIN
     Route: 048
  4. PROPRANOLOL [Suspect]
     Active Substance: PROPRANOLOL HYDROCHLORIDE
     Route: 048
  5. LORAZEPAM. [Suspect]
     Active Substance: LORAZEPAM
     Route: 048
  6. AMITRIPTYLINE [Suspect]
     Active Substance: AMITRIPTYLINE
     Route: 048
  7. BUPROPION. [Suspect]
     Active Substance: BUPROPION
     Route: 048
  8. PANTOPRAZOLE [Suspect]
     Active Substance: PANTOPRAZOLE
     Route: 048
  9. OXYCODONE [Suspect]
     Active Substance: OXYCODONE
     Route: 048
  10. FESOTERODINE [Suspect]
     Active Substance: FESOTERODINE
     Route: 048

REACTIONS (5)
  - Brain injury [Fatal]
  - Hypotension [Fatal]
  - Overdose [Fatal]
  - Loss of consciousness [Not Recovered/Not Resolved]
  - Pulseless electrical activity [Fatal]
